FAERS Safety Report 10795801 (Version 1)
Quarter: 2015Q1

REPORT INFORMATION
  Report Type: Report from Study
  Country: BR (occurrence: BR)
  Receive Date: 20150215
  Receipt Date: 20150215
  Transmission Date: 20150721
  Serious: Yes (Hospitalization)
  Sender: FDA-Public Use
  Company Number: BR-ROCHE-1363392

PATIENT
  Age: 49 Year
  Sex: Female
  Weight: 71.5 kg

DRUGS (4)
  1. ARAVA [Concomitant]
     Active Substance: LEFLUNOMIDE
  2. AAS [Concomitant]
     Active Substance: ASPIRIN
  3. MABTHERA [Suspect]
     Active Substance: RITUXIMAB
     Indication: RHEUMATOID ARTHRITIS
     Dosage: THE LASTED INFUSION WAS ADMINISTERED ON 27/JUN/2013
     Route: 042
     Dates: start: 20130612
  4. PRESS PLUS [Concomitant]
     Dosage: 5/10 UNIT NOT REPORTED
     Route: 065

REACTIONS (5)
  - Bone disorder [Unknown]
  - Dyspnoea [Unknown]
  - Limb injury [Not Recovered/Not Resolved]
  - Pruritus [Not Recovered/Not Resolved]
  - Fatigue [Unknown]

NARRATIVE: CASE EVENT DATE: 20130612
